FAERS Safety Report 23812517 (Version 2)
Quarter: 2024Q2

REPORT INFORMATION
  Report Type: Spontaneous
  Country: CZ (occurrence: CZ)
  Receive Date: 20240503
  Receipt Date: 20240508
  Transmission Date: 20240716
  Serious: Yes (Other)
  Sender: FDA-Public Use
  Company Number: CZ-009507513-2404CZE009305

PATIENT
  Age: 82 Year
  Sex: Male
  Weight: 90 kg

DRUGS (5)
  1. CARBOPLATIN [Suspect]
     Active Substance: CARBOPLATIN
     Indication: Lung adenocarcinoma
     Dosage: 4 CYCLES IN TOTAL
     Route: 065
     Dates: start: 202301
  2. PEMETREXED [Suspect]
     Active Substance: PEMETREXED
     Indication: Lung adenocarcinoma
     Dosage: 9 CYCLES IN TOTAL
     Route: 065
     Dates: start: 202301, end: 202311
  3. PEMETREXED [Suspect]
     Active Substance: PEMETREXED
     Dosage: 9 CYCLES IN TOTAL
     Route: 065
     Dates: start: 202301
  4. PEMBROLIZUMAB [Suspect]
     Active Substance: PEMBROLIZUMAB
     Dosage: 200 MG, Q3W
     Route: 065
  5. PEMBROLIZUMAB [Suspect]
     Active Substance: PEMBROLIZUMAB
     Indication: Lung adenocarcinoma
     Dosage: 15 CYCLES IN TOTAL, EVERY 3 WEEKS
     Route: 065
     Dates: start: 202301, end: 202401

REACTIONS (16)
  - Polymyalgia rheumatica [Recovering/Resolving]
  - Eosinophilia [Recovered/Resolved]
  - Hypophagia [Recovered/Resolved]
  - Injury [Recovered/Resolved]
  - Prosthesis implantation [Unknown]
  - Ulcer [Recovered/Resolved]
  - Arthralgia [Recovered/Resolved]
  - Arthralgia [Recovering/Resolving]
  - Groin pain [Recovering/Resolving]
  - Dysgeusia [Recovered/Resolved]
  - Stomatitis [Recovered/Resolved]
  - Fatigue [Not Recovered/Not Resolved]
  - Pain [Recovered/Resolved]
  - Anaemia [Recovered/Resolved]
  - Oral herpes [Unknown]
  - Product use in unapproved indication [Unknown]

NARRATIVE: CASE EVENT DATE: 20230101
